FAERS Safety Report 16070928 (Version 2)
Quarter: 2019Q1

REPORT INFORMATION
  Report Type: Report from Study
  Country: CO (occurrence: CO)
  Receive Date: 20190314
  Receipt Date: 20190320
  Transmission Date: 20190418
  Serious: Yes (Hospitalization)
  Sender: FDA-Public Use
  Company Number: PHHY2019CO054203

PATIENT
  Sex: Female
  Weight: 46 kg

DRUGS (1)
  1. GILENYA [Suspect]
     Active Substance: FINGOLIMOD HYDROCHLORIDE
     Indication: MULTIPLE SCLEROSIS
     Dosage: 0.5 MG, QD
     Route: 048
     Dates: start: 20180517, end: 201812

REACTIONS (9)
  - Skin lesion [Unknown]
  - Pyrexia [Recovering/Resolving]
  - Multiple sclerosis relapse [Unknown]
  - Blood pressure decreased [Recovering/Resolving]
  - Anoxia [Recovering/Resolving]
  - Mobility decreased [Unknown]
  - Dysphagia [Unknown]
  - Eschar [Recovering/Resolving]
  - Skin infection [Unknown]
